FAERS Safety Report 17482681 (Version 1)
Quarter: 2020Q1

REPORT INFORMATION
  Report Type: Spontaneous
  Country: US (occurrence: US)
  Receive Date: 20200218
  Receipt Date: 20200218
  Transmission Date: 20200409
  Serious: Yes (Other)
  Sender: FDA-Public Use
  Company Number: None

PATIENT
  Sex: Female

DRUGS (13)
  1. COSENTYX [Suspect]
     Active Substance: SECUKINUMAB
     Indication: PSORIATIC ARTHROPATHY
     Route: 058
     Dates: start: 20191212
  2. ESTRADIOL. [Concomitant]
     Active Substance: ESTRADIOL
  3. GABAPENTIN. [Concomitant]
     Active Substance: GABAPENTIN
  4. BELBUCA [Concomitant]
     Active Substance: BUPRENORPHINE HYDROCHLORIDE
  5. VEBRYD [Concomitant]
  6. LISINOPRIL. [Concomitant]
     Active Substance: LISINOPRIL
  7. OMEPRAZOLE. [Concomitant]
     Active Substance: OMEPRAZOLE
  8. CLOTRIM/BETA CRE [Concomitant]
  9. HYDROCO [Concomitant]
  10. TAMOXIFEN [Concomitant]
     Active Substance: TAMOXIFEN
  11. EZETIMIBE. [Concomitant]
     Active Substance: EZETIMIBE
  12. NORTIPTYLIN [Concomitant]
  13. VIT D [Concomitant]
     Active Substance: VITAMIN D NOS

REACTIONS (1)
  - Surgery [None]
